FAERS Safety Report 11898285 (Version 1)
Quarter: 2016Q1

REPORT INFORMATION
  Report Type: Spontaneous
  Country: TR (occurrence: TR)
  Receive Date: 20160108
  Receipt Date: 20160108
  Transmission Date: 20160526
  Serious: Yes (Death, Congenital Anomaly)
  Sender: FDA-Public Use
  Company Number: TR-009507513-1512TUR014139

PATIENT

DRUGS (1)
  1. TEMODAL [Suspect]
     Active Substance: TEMOZOLOMIDE
     Dosage: UNK
     Route: 064

REACTIONS (4)
  - Congenital central nervous system anomaly [Fatal]
  - Congenital genitourinary abnormality [Fatal]
  - Congenital musculoskeletal anomaly [Fatal]
  - Foetal exposure during pregnancy [Recovered/Resolved]
